FAERS Safety Report 8361009-9 (Version None)
Quarter: 2012Q2

REPORT INFORMATION
  Report Type: 
  Country: None (occurrence: None)
  Receive Date: 20120515
  Receipt Date: 20120502
  Transmission Date: 20120825
  Serious: Yes (Other)
  Sender: FDA-Public Use
  Company Number: US-ROCHE-784186

PATIENT
  Age: 55 Year
  Sex: Female

DRUGS (7)
  1. ANASTROZOLE [Suspect]
     Indication: PRODUCT USED FOR UNKNOWN INDICATION
     Dosage: INTERRUPTED
     Route: 065
  2. LAPATINIB [Suspect]
     Route: 048
  3. HERCEPTIN [Suspect]
     Indication: BREAST CANCER
     Dosage: VARIABLE DOSE
     Route: 042
  4. LISINOPRIL [Concomitant]
  5. LAPATINIB [Suspect]
     Indication: BREAST CANCER
     Route: 048
     Dates: start: 20100409
  6. CREAM NOS [Concomitant]
     Dosage: TOPICAL AGENT TO TREAT YEAST INFECTION
  7. DOCETAXEL [Suspect]
     Indication: BREAST CANCER
     Route: 042
     Dates: start: 20100409

REACTIONS (8)
  - DEHYDRATION [None]
  - HYPOKALAEMIA [None]
  - DIARRHOEA [None]
  - SYNCOPE [None]
  - MYALGIA [None]
  - DEPRESSION [None]
  - NAUSEA [None]
  - EXFOLIATIVE RASH [None]
